FAERS Safety Report 8925708 (Version 1)
Quarter: 2012Q4

REPORT INFORMATION
  Report Type: 
  Country: IE (occurrence: IE)
  Receive Date: 20121126
  Receipt Date: 20121126
  Transmission Date: 20130627
  Serious: Yes (Other)
  Sender: FDA-Public Use
  Company Number: IE-ELI_LILLY_AND_COMPANY-IE201211004064

PATIENT
  Age: 64 Year
  Sex: Male

DRUGS (1)
  1. ZYPREXA [Suspect]
     Indication: SCHIZOAFFECTIVE DISORDER
     Dosage: 1 DF, unknown

REACTIONS (15)
  - Monoclonal gammopathy [Unknown]
  - Musculoskeletal stiffness [Unknown]
  - Neuropathy peripheral [Unknown]
  - Gait disturbance [Unknown]
  - Hypoaesthesia [Unknown]
  - Dysphagia [Unknown]
  - Lactic acidosis [Unknown]
  - Sinusitis [Unknown]
  - Blood uric acid increased [Unknown]
  - Dyskinesia [Unknown]
  - Gynaecomastia [Unknown]
  - Fatigue [Unknown]
  - Dizziness [Unknown]
  - Blood prolactin increased [Unknown]
  - Asthenia [Unknown]
